FAERS Safety Report 6175885-1 (Version None)
Quarter: 2009Q2

REPORT INFORMATION
  Report Type: 
  Country: None (occurrence: None)
  Receive Date: 20090501
  Receipt Date: 20090421
  Transmission Date: 20091009
  Serious: Yes (Other)
  Sender: FDA-Public Use
  Company Number: US-PFIZER INC-2009202605

PATIENT
  Age: 94 Year

DRUGS (1)
  1. XALATAN [Suspect]

REACTIONS (1)
  - DEMENTIA [None]
